FAERS Safety Report 18872925 (Version 1)
Quarter: 2021Q1

REPORT INFORMATION
  Report Type: Spontaneous
  Country: US (occurrence: US)
  Receive Date: 20210210
  Receipt Date: 20210210
  Transmission Date: 20210420
  Serious: No
  Sender: FDA-Public Use
  Company Number: None

PATIENT
  Age: 52 Year
  Sex: Male
  Weight: 72 kg

DRUGS (6)
  1. PROBIOTICS [Concomitant]
     Active Substance: PROBIOTICS NOS
  2. FISH OIL [Concomitant]
     Active Substance: FISH OIL
  3. GLUCOSAMINE [Concomitant]
     Active Substance: GLUCOSAMINE
  4. TURMERIC [Concomitant]
     Active Substance: HERBALS\TURMERIC
  5. KLONOPIN [Suspect]
     Active Substance: CLONAZEPAM
     Indication: STRESS AT WORK
     Route: 048
     Dates: start: 20050101, end: 20190401
  6. MAGNESIUM [Concomitant]
     Active Substance: MAGNESIUM

REACTIONS (7)
  - Anxiety [None]
  - Intrusive thoughts [None]
  - Tinnitus [None]
  - Insomnia [None]
  - Muscle tightness [None]
  - Loss of personal independence in daily activities [None]
  - Pruritus [None]
